FAERS Safety Report 5189932-7 (Version None)
Quarter: 2006Q4

REPORT INFORMATION
  Report Type: 
  Country: None (occurrence: None)
  Receive Date: 20061215
  Receipt Date: 20061204
  Transmission Date: 20070319
  Serious: Yes (Other)
  Sender: FDA-Public Use
  Company Number: 2006150322

PATIENT
  Age: 69 Year
  Sex: Female

DRUGS (5)
  1. LYRICA [Suspect]
     Indication: PAIN
     Dosage: 300 MG (150 MG,])
     Dates: start: 20061003
  2. TERIPARATIDE [Concomitant]
  3. FENTANYL TRANSDERMAL SYSTEM [Concomitant]
  4. LORAZEPAM [Concomitant]
  5. OMEPRAZOLE [Concomitant]

REACTIONS (2)
  - SKIN DISORDER [None]
  - SWOLLEN TONGUE [None]
